FAERS Safety Report 7385193-9 (Version None)
Quarter: 2011Q1

REPORT INFORMATION
  Report Type: 
  Country: None (occurrence: None)
  Receive Date: 20110330
  Receipt Date: 20110103
  Transmission Date: 20110831
  Serious: No
  Sender: FDA-Public Use
  Company Number: US-MYLANLABS-2010S1021860

PATIENT
  Age: 58 Year
  Sex: Female

DRUGS (9)
  1. CALCIUM [Concomitant]
     Indication: SUPPLEMENTATION THERAPY
  2. ZOCOR [Concomitant]
     Indication: BLOOD CHOLESTEROL
  3. VITAMIN D [Concomitant]
     Indication: SUPPLEMENTATION THERAPY
  4. ASPIRIN [Concomitant]
  5. NIFEDIPINE [Suspect]
     Indication: BLOOD PRESSURE
     Route: 048
     Dates: start: 20100913, end: 20100915
  6. MULTI-VITAMIN [Concomitant]
     Indication: SUPPLEMENTATION THERAPY
  7. CHONDROITIN SULFATE W/GLUCOSAMINE [Concomitant]
     Indication: SUPPLEMENTATION THERAPY
  8. FISH OIL [Concomitant]
     Indication: SUPPLEMENTATION THERAPY
  9. ASCORBIC ACID [Concomitant]
     Indication: SUPPLEMENTATION THERAPY

REACTIONS (3)
  - DRUG INEFFECTIVE [None]
  - SYNCOPE [None]
  - DIZZINESS [None]
